FAERS Safety Report 5146060-4 (Version None)
Quarter: 2006Q4

REPORT INFORMATION
  Report Type: 
  Country: None (occurrence: None)
  Receive Date: 20061108
  Receipt Date: 20061031
  Transmission Date: 20070319
  Serious: Yes (Other)
  Sender: FDA-Public Use
  Company Number: JP-JPN-A200604654

PATIENT
  Sex: Male

DRUGS (3)
  1. PAXIL [Suspect]
     Route: 048
     Dates: start: 20060101
  2. PAXIL [Suspect]
     Route: 048
  3. DEPROMEL [Concomitant]
     Route: 048

REACTIONS (3)
  - HYPOKALAEMIA [None]
  - NAUSEA [None]
  - RENAL IMPAIRMENT [None]
